FAERS Safety Report 24417609 (Version 1)
Quarter: 2024Q4

REPORT INFORMATION
  Report Type: Spontaneous
  Country: US (occurrence: US)
  Receive Date: 20241009
  Receipt Date: 20241009
  Transmission Date: 20250115
  Serious: Yes (Hospitalization)
  Sender: PFIZER
  Company Number: US-PFIZER INC-PV202400130530

PATIENT
  Age: 57 Year
  Sex: Male

DRUGS (2)
  1. AXITINIB [Suspect]
     Active Substance: AXITINIB
     Indication: Clear cell renal cell carcinoma
     Dosage: UNK, CYCLIC
  2. PEMBROLIZUMAB [Suspect]
     Active Substance: PEMBROLIZUMAB
     Indication: Clear cell renal cell carcinoma
     Dosage: UNK, CYCLIC

REACTIONS (2)
  - Reversible cerebral vasoconstriction syndrome [Unknown]
  - Hypertension [Unknown]
